FAERS Safety Report 9803332 (Version 1)
Quarter: 2014Q1

REPORT INFORMATION
  Report Type: Report from Study
  Country: BR (occurrence: BR)
  Receive Date: 20140108
  Receipt Date: 20140108
  Transmission Date: 20141002
  Serious: Yes (Death)
  Sender: FDA-Public Use
  Company Number: PHHY2014BR001594

PATIENT
  Sex: Male
  Weight: 85 kg

DRUGS (1)
  1. EXELON PATCH [Suspect]
     Dosage: UNK
     Route: 062

REACTIONS (1)
  - Infarction [Fatal]
